FAERS Safety Report 8436628-1 (Version None)
Quarter: 2012Q2

REPORT INFORMATION
  Report Type: 
  Country: None (occurrence: None)
  Receive Date: 20120323
  Receipt Date: 20110808
  Transmission Date: 20120825
  Serious: Yes (Other)
  Sender: FDA-Public Use
  Company Number: 163-21880-11063280

PATIENT
  Age: 78 Year
  Sex: Male
  Weight: 88 kg

DRUGS (8)
  1. REVLIMID [Suspect]
     Indication: MULTIPLE MYELOMA
     Dosage: 15 MG, DAILY FOR 21 DAYS, PO 10 MG, DAILY, PO
     Route: 048
     Dates: start: 20110623
  2. REVLIMID [Suspect]
     Indication: MULTIPLE MYELOMA
     Dosage: 15 MG, DAILY FOR 21 DAYS, PO 10 MG, DAILY, PO
     Route: 048
     Dates: start: 20091201
  3. OXYCONTIN [Concomitant]
  4. LOVENOX [Concomitant]
  5. POTASSIUM CHLORIDE [Concomitant]
  6. PERCOCET [Concomitant]
  7. DECADRON [Concomitant]
  8. PROTONIX [Concomitant]

REACTIONS (2)
  - ASTHENIA [None]
  - PANCYTOPENIA [None]
